FAERS Safety Report 11034186 (Version 2)
Quarter: 2015Q2

REPORT INFORMATION
  Report Type: Spontaneous
  Country: US (occurrence: US)
  Receive Date: 20150415
  Receipt Date: 20150525
  Transmission Date: 20150821
  Serious: Yes (Other)
  Sender: FDA-Public Use
  Company Number: US-JNJFOC-20150211617

PATIENT
  Sex: Male

DRUGS (4)
  1. XARELTO [Suspect]
     Active Substance: RIVAROXABAN
     Indication: PERIPHERAL ARTERY BYPASS
     Route: 048
     Dates: start: 201501
  2. XARELTO [Suspect]
     Active Substance: RIVAROXABAN
     Indication: THROMBOSIS PROPHYLAXIS
     Route: 048
     Dates: start: 201501
  3. XARELTO [Suspect]
     Active Substance: RIVAROXABAN
     Indication: PERIPHERAL ARTERY BYPASS
     Route: 048
  4. XARELTO [Suspect]
     Active Substance: RIVAROXABAN
     Indication: THROMBOSIS PROPHYLAXIS
     Route: 048

REACTIONS (2)
  - Product use issue [Unknown]
  - Blood urine present [Not Recovered/Not Resolved]

NARRATIVE: CASE EVENT DATE: 201501
